FAERS Safety Report 6672156-1 (Version None)
Quarter: 2010Q2

REPORT INFORMATION
  Report Type: 
  Country: None (occurrence: None)
  Receive Date: 20100406
  Receipt Date: 20100322
  Transmission Date: 20101027
  Serious: Yes (Hospitalization, Disabling)
  Sender: FDA-Public Use
  Company Number: 2009002469

PATIENT

DRUGS (2)
  1. ERLOTINIB (ERLOTINIB) (TABLET) (ERLOTINIB) [Suspect]
     Indication: COLORECTAL CANCER METASTATIC
     Dosage: ORAL
     Route: 048
     Dates: start: 20080125, end: 20090625
  2. BEVACIZUMAB [Suspect]
     Indication: COLORECTAL CANCER METASTATIC
     Dates: start: 20080125, end: 20090615

REACTIONS (4)
  - BONE DISORDER [None]
  - INFECTION [None]
  - RASH [None]
  - ULCER [None]
